FAERS Safety Report 6210648-X (Version None)
Quarter: 2009Q2

REPORT INFORMATION
  Report Type: 
  Country: None (occurrence: None)
  Receive Date: 20090529
  Receipt Date: 20090529
  Transmission Date: 20091009
  Serious: Yes (Hospitalization)
  Sender: FDA-Public Use
  Company Number: None

PATIENT
  Age: 41 Year
  Sex: Female
  Weight: 74.5 kg

DRUGS (1)
  1. FUROSEMIDE [Suspect]
     Dosage: 40 MG TID PO
     Route: 048
     Dates: start: 20070615, end: 20090526

REACTIONS (1)
  - HYPOKALAEMIA [None]
